FAERS Safety Report 11395169 (Version 5)
Quarter: 2018Q1

REPORT INFORMATION
  Report Type: Spontaneous
  Country: US (occurrence: US)
  Receive Date: 20150819
  Receipt Date: 20180125
  Transmission Date: 20180508
  Serious: Yes (Hospitalization, Other)
  Sender: FDA-Public Use
  Company Number: US-PFIZER INC-2015265970

PATIENT
  Age: 71 Year
  Sex: Female

DRUGS (5)
  1. LYRICA [Suspect]
     Active Substance: PREGABALIN
     Indication: FIBROMYALGIA
     Dosage: 75 MG, 2X/DAY (75 MG IN THE MORNING AND 75 MG AT THE BED TIME)
  2. MORPHINE [Concomitant]
     Active Substance: MORPHINE
     Dosage: UNK
     Dates: start: 20070627, end: 20130825
  3. LYRICA [Suspect]
     Active Substance: PREGABALIN
     Indication: BACK PAIN
     Dosage: 75 MG, 2X/DAY (1 MORNING, 1 NIGHT, TWICE A DAY)
  4. LYRICA [Suspect]
     Active Substance: PREGABALIN
     Indication: NERVE INJURY
  5. HYDROCODONE [Concomitant]
     Active Substance: HYDROCODONE
     Indication: PAIN
     Dosage: CAN TAKE IT 4 TIMES A DAY BUT SHE TRIED ONLY TAKING 3 TIMES A DAY
     Dates: start: 20130825

REACTIONS (8)
  - Psychiatric symptom [Unknown]
  - Drug ineffective [Not Recovered/Not Resolved]
  - Panic attack [Recovered/Resolved]
  - Pneumonia [Unknown]
  - Back pain [Not Recovered/Not Resolved]
  - Laceration [Recovered/Resolved]
  - Diarrhoea [Recovered/Resolved]
  - Weight decreased [Recovered/Resolved]

NARRATIVE: CASE EVENT DATE: 2007
